FAERS Safety Report 5299088-8 (Version None)
Quarter: 2007Q2

REPORT INFORMATION
  Report Type: 
  Country: None (occurrence: None)
  Receive Date: 20070417
  Receipt Date: 20070416
  Transmission Date: 20071010
  Serious: Yes (Other)
  Sender: FDA-Public Use
  Company Number: CA-GLAXOSMITHKLINE-A0647456A

PATIENT
  Age: 62 Year
  Sex: Female

DRUGS (3)
  1. AVANDIA [Suspect]
     Indication: INSULIN RESISTANCE
     Route: 048
     Dates: start: 20070403
  2. METFORMIN HCL [Concomitant]
     Indication: INSULIN RESISTANCE
     Dates: start: 20070403
  3. AVANDAMET [Concomitant]
     Dates: start: 20070323, end: 20070402

REACTIONS (7)
  - BACK PAIN [None]
  - DRUG INEFFECTIVE [None]
  - HEADACHE [None]
  - HYPERHIDROSIS [None]
  - POLYCYSTIC OVARIES [None]
  - SWELLING [None]
  - VAGINAL HAEMORRHAGE [None]
